FAERS Safety Report 10480598 (Version 1)
Quarter: 2014Q3

REPORT INFORMATION
  Report Type: Spontaneous
  Country: US (occurrence: None)
  Receive Date: 20140925
  Receipt Date: 20140925
  Transmission Date: 20150326
  Serious: Yes (Hospitalization)
  Sender: FDA-Public Use
  Company Number: VAL_03425_2014

PATIENT
  Sex: Male

DRUGS (18)
  1. LACTULOSE. [Concomitant]
     Active Substance: LACTULOSE
  2. VANCOMYCIN [Concomitant]
     Active Substance: VANCOMYCIN
  3. FER-IRON [Concomitant]
  4. DIANEAL [Concomitant]
     Active Substance: CALCIUM CHLORIDE\DEXTROSE\MAGNESIUM CHLORIDE\SODIUM CHLORIDE\SODIUM LACTATE
  5. NUTROPIN AQ [Suspect]
     Active Substance: SOMATROPIN
     Indication: RENAL FAILURE CHRONIC
     Route: 058
     Dates: start: 201001
  6. NEUTRA-PHOS-K [Concomitant]
  7. MULTIVITAMINS [Concomitant]
     Active Substance: VITAMINS
  8. CALCIUM CARBONATE. [Concomitant]
     Active Substance: CALCIUM CARBONATE
  9. POLYVISOL [Concomitant]
  10. GLOBIONATE [Concomitant]
  11. BICITRA [Concomitant]
     Active Substance: CITRIC ACID, 1-STEARYL ESTER\SODIUM CITRATE
  12. NUTROPIN AQ [Suspect]
     Active Substance: SOMATROPIN
     Indication: FAILURE TO THRIVE
     Route: 058
     Dates: start: 201001
  13. HEPARIN SODIUM. [Concomitant]
     Active Substance: HEPARIN SODIUM
  14. FLAGYL [Concomitant]
     Active Substance: METRONIDAZOLE\METRONIDAZOLE HYDROCHLORIDE
  15. ROCALTROL [Suspect]
     Active Substance: CALCITRIOL
     Indication: PRODUCT USED FOR UNKNOWN INDICATION
     Dosage: 2 UG QD ORAL
     Route: 048
  16. NUTROPIN AQ [Suspect]
     Active Substance: SOMATROPIN
     Indication: BODY HEIGHT BELOW NORMAL
     Route: 058
     Dates: start: 201001
  17. MIRALAX [Concomitant]
     Active Substance: POLYETHYLENE GLYCOL 3350
  18. MUPIROCIN. [Concomitant]
     Active Substance: MUPIROCIN

REACTIONS (8)
  - Blood sodium decreased [None]
  - Clostridium difficile colitis [None]
  - Blood parathyroid hormone increased [None]
  - Weight decreased [None]
  - Hypercalcaemia [None]
  - Catheter site dryness [None]
  - Dry skin [None]
  - Decreased appetite [None]
